FAERS Safety Report 9206277 (Version 1)
Quarter: 2013Q2

REPORT INFORMATION
  Report Type: Report from Study
  Country: FR (occurrence: FR)
  Receive Date: 20130403
  Receipt Date: 20130403
  Transmission Date: 20140414
  Serious: Yes (Hospitalization)
  Sender: FDA-Public Use
  Company Number: PHHY2013FR031775

PATIENT
  Age: 74 Year
  Sex: Female
  Weight: 54 kg

DRUGS (4)
  1. MYCOPHENOLATE MOFETIL [Suspect]
     Indication: RENAL TRANSPLANT
     Dosage: 2 G, QD
     Route: 048
     Dates: start: 20121023
  2. CICLOSPORIN [Suspect]
     Indication: RENAL TRANSPLANT
     Dosage: 120 MG, QD
     Route: 048
     Dates: start: 20121023, end: 20121213
  3. CERTICAN [Suspect]
     Indication: RENAL TRANSPLANT
     Dosage: 3 MG, QD
     Route: 048
     Dates: start: 20121204
  4. CERTICAN [Suspect]
     Dosage: 2 MG, QD
     Route: 048
     Dates: start: 20121215

REACTIONS (4)
  - Toxicity to various agents [Unknown]
  - Dehydration [Unknown]
  - Aphthous stomatitis [Not Recovered/Not Resolved]
  - Diarrhoea [Not Recovered/Not Resolved]
